FAERS Safety Report 9176886 (Version 1)
Quarter: 2013Q1

REPORT INFORMATION
  Report Type: Spontaneous
  Country: BE (occurrence: BE)
  Receive Date: 20130321
  Receipt Date: 20130321
  Transmission Date: 20140127
  Serious: Yes (Other)
  Sender: FDA-Public Use
  Company Number: PHHY2013BE026931

PATIENT
  Age: 74 Year
  Sex: Male

DRUGS (10)
  1. ZOMETA [Suspect]
     Indication: METASTASES TO BONE
     Dosage: 4 MG, 1X PER 3 WEEKS
     Dates: start: 2008, end: 201208
  2. DISTILBENE [Concomitant]
     Indication: PROSTATE CANCER
     Dosage: 3 MG, QD
     Route: 048
  3. DEPO ELIGARD [Concomitant]
     Indication: PROSTATE CANCER
     Dosage: 22.5 MG, EVERY 3 MONTHS
     Route: 058
  4. ASAFLOW [Concomitant]
     Dosage: 80 MG, QD
     Route: 048
  5. COVERSYL                                /FRA/ [Concomitant]
     Dosage: 5 MG, QD
     Route: 048
  6. EMCONCOR [Concomitant]
     Dosage: 2.5 MG, QD
     Route: 048
  7. PANTOMED//PANTOPRAZOLE SODIUM SESQUIHYDRATE [Concomitant]
     Dosage: 20 MG, AS NEEDED
     Route: 048
  8. D-CURE [Concomitant]
     Dosage: UNK UKN, QD
     Route: 048
  9. BROMAZEPAM [Concomitant]
     Dosage: 6 MG, QD
     Route: 048
  10. IBUPROFEN [Concomitant]
     Dosage: 600 MG, 1-2 DAILY
     Route: 048

REACTIONS (3)
  - Osteonecrosis of jaw [Recovered/Resolved with Sequelae]
  - Abscess [Recovered/Resolved with Sequelae]
  - Exposed bone in jaw [Recovered/Resolved with Sequelae]
